FAERS Safety Report 17762544 (Version 2)
Quarter: 2020Q2

REPORT INFORMATION
  Report Type: Spontaneous
  Country: US (occurrence: US)
  Receive Date: 20200508
  Receipt Date: 20200526
  Transmission Date: 20200714
  Serious: Yes (Other)
  Sender: FDA-Public Use
  Company Number: US-BRACCO-2020US01892

PATIENT
  Sex: Female

DRUGS (49)
  1. MULTIHANCE [Suspect]
     Active Substance: GADOBENATE DIMEGLUMINE
     Indication: MAGNETIC RESONANCE IMAGING
     Dosage: 0.1 MMOL/KG
     Dates: start: 20080409, end: 20080409
  2. MULTIHANCE [Suspect]
     Active Substance: GADOBENATE DIMEGLUMINE
     Indication: MAGNETIC RESONANCE IMAGING
     Dosage: 0.1 MMOL/KG
     Dates: start: 20091110, end: 20091110
  3. MULTIHANCE [Suspect]
     Active Substance: GADOBENATE DIMEGLUMINE
     Indication: MAGNETIC RESONANCE IMAGING
     Dosage: 0.1 MMOL/KG
     Dates: start: 20100215, end: 20100215
  4. MULTIHANCE [Suspect]
     Active Substance: GADOBENATE DIMEGLUMINE
     Indication: MAGNETIC RESONANCE IMAGING
     Dosage: 0.1 MMOL/KG
     Dates: start: 20120409, end: 20120409
  5. OMNISCAN [Suspect]
     Active Substance: GADODIAMIDE
     Indication: MAGNETIC RESONANCE IMAGING
     Dosage: 0.1 MMOL/KG
     Dates: start: 20030217, end: 20030217
  6. OMNISCAN [Suspect]
     Active Substance: GADODIAMIDE
     Indication: MAGNETIC RESONANCE IMAGING
     Dosage: 0.1 MMOL/KG
     Dates: start: 20050407, end: 20050407
  7. MULTIHANCE [Suspect]
     Active Substance: GADOBENATE DIMEGLUMINE
     Indication: MAGNETIC RESONANCE IMAGING
     Dosage: 0.1 MMOL/KG
     Dates: start: 20090616, end: 20090616
  8. MULTIHANCE [Suspect]
     Active Substance: GADOBENATE DIMEGLUMINE
     Indication: MAGNETIC RESONANCE IMAGING
     Dosage: 0.1 MMOL/KG
     Dates: start: 20131209, end: 20131209
  9. OMNISCAN [Suspect]
     Active Substance: GADODIAMIDE
     Indication: MAGNETIC RESONANCE IMAGING
     Dosage: 0.1 MMOL/KG
     Dates: start: 20031002, end: 20031002
  10. OMNISCAN [Suspect]
     Active Substance: GADODIAMIDE
     Indication: MAGNETIC RESONANCE IMAGING
     Dosage: 0.1 MMOL/KG
     Dates: start: 20040715, end: 20040715
  11. MULTIHANCE [Suspect]
     Active Substance: GADOBENATE DIMEGLUMINE
     Indication: MAGNETIC RESONANCE IMAGING
     Dosage: 0.1 MMOL/KG
     Dates: start: 20090120, end: 20090120
  12. MULTIHANCE [Suspect]
     Active Substance: GADOBENATE DIMEGLUMINE
     Indication: MAGNETIC RESONANCE IMAGING
     Dosage: 0.1 MMOL/KG
     Dates: start: 20090324, end: 20090324
  13. MULTIHANCE [Suspect]
     Active Substance: GADOBENATE DIMEGLUMINE
     Indication: MAGNETIC RESONANCE IMAGING
     Dosage: 0.1 MMOL/KG
     Dates: start: 20090722, end: 20090722
  14. MULTIHANCE [Suspect]
     Active Substance: GADOBENATE DIMEGLUMINE
     Indication: MAGNETIC RESONANCE IMAGING
     Dosage: 0.1 MMOL/KG
     Dates: start: 20100608, end: 20100608
  15. MULTIHANCE [Suspect]
     Active Substance: GADOBENATE DIMEGLUMINE
     Indication: MAGNETIC RESONANCE IMAGING
     Dosage: 0.1 MMOL/KG
     Dates: start: 20150321, end: 20150321
  16. MULTIHANCE [Suspect]
     Active Substance: GADOBENATE DIMEGLUMINE
     Indication: MAGNETIC RESONANCE IMAGING
     Dosage: 0.1 MMOL/KG
     Dates: start: 20120917, end: 20120917
  17. MULTIHANCE [Suspect]
     Active Substance: GADOBENATE DIMEGLUMINE
     Indication: MAGNETIC RESONANCE IMAGING
     Dosage: 0.1 MMOL/KG
     Dates: start: 20130201, end: 20130201
  18. MULTIHANCE [Suspect]
     Active Substance: GADOBENATE DIMEGLUMINE
     Indication: MAGNETIC RESONANCE IMAGING
     Dosage: 0.1 MMOL/KG
     Dates: start: 20130610, end: 20130610
  19. MULTIHANCE [Suspect]
     Active Substance: GADOBENATE DIMEGLUMINE
     Indication: MAGNETIC RESONANCE IMAGING
     Dosage: 0.1 MMOL/KG
     Dates: start: 20131025, end: 20131025
  20. OMNISCAN [Suspect]
     Active Substance: GADODIAMIDE
     Indication: MAGNETIC RESONANCE IMAGING
     Dosage: UNK UNK, SINGLE
     Dates: start: 20030807, end: 20030807
  21. OMNISCAN [Suspect]
     Active Substance: GADODIAMIDE
     Indication: MAGNETIC RESONANCE IMAGING
     Dosage: 0.1 MMOL/KG
     Dates: start: 20050727, end: 20050727
  22. OMNISCAN [Suspect]
     Active Substance: GADODIAMIDE
     Indication: MAGNETIC RESONANCE IMAGING
     Dosage: 0.1 MMOL/KG
     Dates: start: 20070522, end: 20070522
  23. MULTIHANCE [Suspect]
     Active Substance: GADOBENATE DIMEGLUMINE
     Indication: MAGNETIC RESONANCE IMAGING
     Dosage: 0.1 MMOL/KG
     Dates: start: 20100109, end: 20100109
  24. MULTIHANCE [Suspect]
     Active Substance: GADOBENATE DIMEGLUMINE
     Indication: MAGNETIC RESONANCE IMAGING
     Dosage: 0.1 MMOL/KG
     Dates: start: 20100608, end: 20100608
  25. OMNISCAN [Suspect]
     Active Substance: GADODIAMIDE
     Indication: MAGNETIC RESONANCE IMAGING
     Dosage: 0.1 MMOL/KG
     Dates: start: 20040602, end: 20040602
  26. OMNISCAN [Suspect]
     Active Substance: GADODIAMIDE
     Indication: MAGNETIC RESONANCE IMAGING SPINAL
     Dosage: 0.1 MMOL/KG
     Dates: start: 20040826, end: 20040826
  27. OMNISCAN [Suspect]
     Active Substance: GADODIAMIDE
     Indication: MAGNETIC RESONANCE IMAGING
     Dosage: 0.1 MMOL/KG
     Dates: start: 20070912, end: 20070912
  28. MULTIHANCE [Suspect]
     Active Substance: GADOBENATE DIMEGLUMINE
     Indication: MAGNETIC RESONANCE IMAGING
     Dosage: 0.1 MMOL/KG
     Dates: start: 20091207, end: 20091207
  29. MULTIHANCE [Suspect]
     Active Substance: GADOBENATE DIMEGLUMINE
     Indication: MAGNETIC RESONANCE IMAGING
     Dosage: 0.1 MMOL/KG
     Dates: start: 20111031, end: 20111031
  30. MULTIHANCE [Suspect]
     Active Substance: GADOBENATE DIMEGLUMINE
     Indication: MAGNETIC RESONANCE IMAGING
     Dosage: 0.1 MMOL/KG
     Dates: start: 20110125, end: 20110125
  31. MULTIHANCE [Suspect]
     Active Substance: GADOBENATE DIMEGLUMINE
     Indication: MAGNETIC RESONANCE IMAGING
     Dosage: 0.1 MMOL/KG
     Dates: start: 201504, end: 201504
  32. MULTIHANCE [Suspect]
     Active Substance: GADOBENATE DIMEGLUMINE
     Indication: MAGNETIC RESONANCE IMAGING
     Dosage: 0.1 MMOL/KG
     Dates: start: 20151020, end: 20151020
  33. OMNISCAN [Suspect]
     Active Substance: GADODIAMIDE
     Indication: MAGNETIC RESONANCE IMAGING
     Dosage: 0.1 MMOL/KG
     Dates: start: 20051123, end: 20051123
  34. OMNISCAN [Suspect]
     Active Substance: GADODIAMIDE
     Indication: MAGNETIC RESONANCE IMAGING
     Dosage: 0.1 MMOL/KG
     Dates: start: 20060927, end: 20060927
  35. MULTIHANCE [Suspect]
     Active Substance: GADOBENATE DIMEGLUMINE
     Indication: MAGNETIC RESONANCE IMAGING
     Dosage: UNK UNK, SINGLE
     Dates: start: 20080825, end: 20080825
  36. MULTIHANCE [Suspect]
     Active Substance: GADOBENATE DIMEGLUMINE
     Indication: MAGNETIC RESONANCE IMAGING
     Dosage: 0.1 MMOL/KG
     Dates: start: 20101122, end: 20101122
  37. MULTIHANCE [Suspect]
     Active Substance: GADOBENATE DIMEGLUMINE
     Indication: MAGNETIC RESONANCE IMAGING
     Dosage: 0.1 MMOL/KG
     Dates: start: 20141027, end: 20141027
  38. OMNISCAN [Suspect]
     Active Substance: GADODIAMIDE
     Indication: MAGNETIC RESONANCE IMAGING
     Dosage: 0.1 MMOL/KG
     Dates: start: 20031210, end: 20031210
  39. OMNISCAN [Suspect]
     Active Substance: GADODIAMIDE
     Indication: MAGNETIC RESONANCE IMAGING
     Dosage: 0.1 MMOL/KG
     Dates: start: 20040415, end: 20040415
  40. OMNISCAN [Suspect]
     Active Substance: GADODIAMIDE
     Indication: MAGNETIC RESONANCE IMAGING
     Dosage: 0.1 MMOL/KG
     Dates: start: 20080131, end: 20080131
  41. MULTIHANCE [Suspect]
     Active Substance: GADOBENATE DIMEGLUMINE
     Indication: MAGNETIC RESONANCE IMAGING
     Dosage: 0.1 MMOL/KG
     Dates: start: 20110722, end: 20110722
  42. OMNISCAN [Suspect]
     Active Substance: GADODIAMIDE
     Indication: MAGNETIC RESONANCE IMAGING BRAIN
     Dosage: 0.1 MMOL/KG
     Dates: start: 20021007, end: 20021007
  43. OMNISCAN [Suspect]
     Active Substance: GADODIAMIDE
     Indication: MAGNETIC RESONANCE IMAGING
     Dosage: 0.1 MMOL/KG
     Dates: start: 20140210, end: 20140210
  44. MULTIHANCE [Suspect]
     Active Substance: GADOBENATE DIMEGLUMINE
     Indication: MAGNETIC RESONANCE IMAGING
     Dosage: 0.1 MMOL/KG
     Dates: start: 20100412, end: 20100412
  45. MULTIHANCE [Suspect]
     Active Substance: GADOBENATE DIMEGLUMINE
     Indication: MAGNETIC RESONANCE IMAGING
     Dosage: 0.1 MMOL/KG
     Dates: start: 20110921, end: 20110921
  46. OMNISCAN [Suspect]
     Active Substance: GADODIAMIDE
     Indication: MAGNETIC RESONANCE IMAGING SPINAL
     Dosage: 0.1 MMOL/KG
     Dates: start: 20040827, end: 20040827
  47. OMNISCAN [Suspect]
     Active Substance: GADODIAMIDE
     Indication: MAGNETIC RESONANCE IMAGING SPINAL
     Dosage: 0.1 MMOL/KG
     Dates: start: 20040825, end: 20040825
  48. OMNISCAN [Suspect]
     Active Substance: GADODIAMIDE
     Indication: MAGNETIC RESONANCE IMAGING
     Dosage: 0.1 MMOL/KG
     Dates: start: 20041202, end: 20041202
  49. OMNISCAN [Suspect]
     Active Substance: GADODIAMIDE
     Indication: MAGNETIC RESONANCE IMAGING SPINAL
     Dosage: 0.1 MMOL/KG
     Dates: start: 20071130, end: 20071130

REACTIONS (2)
  - Contrast media deposition [Unknown]
  - Hyperintensity in brain deep nuclei [Unknown]
